FAERS Safety Report 17869917 (Version 1)
Quarter: 2020Q2

REPORT INFORMATION
  Report Type: Spontaneous
  Country: DK (occurrence: DK)
  Receive Date: 20200608
  Receipt Date: 20200608
  Transmission Date: 20200714
  Serious: Yes (Hospitalization)
  Sender: FDA-Public Use
  Company Number: DK-NOVOPROD-730695

PATIENT
  Age: 50 Year
  Sex: Female

DRUGS (6)
  1. PREDNISOLONE. [Concomitant]
     Active Substance: PREDNISOLONE
     Indication: ADRENOCORTICAL STEROID THERAPY
     Dosage: 37.5 MG, QD (STYRKE: 25MG)
     Route: 048
     Dates: start: 20180618
  2. VENTOLINE [Concomitant]
     Active Substance: ALBUTEROL
     Indication: ASTHMA
     Dosage: 0.2 MG (STYRKE: 0,1MG/DOSIS),AS NECESSARY
     Route: 055
     Dates: start: 20161021
  3. NOVOFEM [Suspect]
     Active Substance: ESTRADIOL HEMIHYDRATE\NORETHINDRONE ACETATE
     Indication: HORMONE THERAPY
     Dosage: UNK (STOPPED TREATMENT AFTER 2 MONTH)
     Route: 048
     Dates: start: 20180910, end: 201811
  4. PREDNISOLONE. [Concomitant]
     Active Substance: PREDNISOLONE
     Dosage: 37.5 MG, QD (STYRKE: 25MG)
     Route: 048
     Dates: start: 2019
  5. SINGULAIR [Concomitant]
     Active Substance: MONTELUKAST SODIUM
     Indication: ASTHMA
     Dosage: 10 MG, QD
     Route: 048
     Dates: start: 20161021
  6. BUFOMIX EASYHALER [Concomitant]
     Active Substance: BUDESONIDE\FORMOTEROL FUMARATE
     Indication: ASTHMA
     Dosage: 1-2 INHALATIONS MORNING AND EVENING STRENGTH: 4.5+160 MICROGRAM/DOSAGE
     Route: 055
     Dates: start: 20181025, end: 2018

REACTIONS (10)
  - Rectal haemorrhage [Unknown]
  - Pelvic pain [Unknown]
  - Nodule [Unknown]
  - Urinary bladder haemorrhage [Unknown]
  - Migraine [Unknown]
  - Adenomyosis [Unknown]
  - Uterine pain [Unknown]
  - Headache [Unknown]
  - Asthma [Unknown]
  - Endometriosis [Unknown]

NARRATIVE: CASE EVENT DATE: 201810
